FAERS Safety Report 23060010 (Version 1)
Quarter: 2023Q4

REPORT INFORMATION
  Report Type: Spontaneous
  Country: US (occurrence: None)
  Receive Date: 20231012
  Receipt Date: 20231012
  Transmission Date: 20240109
  Serious: Yes (Death)
  Sender: FDA-Public Use
  Company Number: None

PATIENT
  Age: 77 Year
  Sex: Female

DRUGS (7)
  1. AMBRISENTAN [Suspect]
     Active Substance: AMBRISENTAN
     Indication: Pulmonary hypertension
     Dosage: FREQUENCY : DAILY;?
     Route: 048
     Dates: start: 20221018, end: 20230925
  2. SILDENAFIL [Concomitant]
     Active Substance: SILDENAFIL
  3. APIXABAN [Concomitant]
     Active Substance: APIXABAN
  4. POTASSIUM + SODIUM PHOSPHATES [Concomitant]
  5. OXYGEN INTRANASAL [Concomitant]
  6. ATORVASTATIN [Concomitant]
     Active Substance: ATORVASTATIN
  7. MIDODRINE [Concomitant]

REACTIONS (2)
  - Dialysis [None]
  - Cardiac arrest [None]

NARRATIVE: CASE EVENT DATE: 20230925
